FAERS Safety Report 15314153 (Version 2)
Quarter: 2018Q3

REPORT INFORMATION
  Report Type: Spontaneous
  Country: US (occurrence: US)
  Receive Date: 20180824
  Receipt Date: 20180920
  Transmission Date: 20181010
  Serious: No
  Sender: FDA-Public Use
  Company Number: US-JNJFOC-20180812539

PATIENT
  Age: 36 Year
  Sex: Female

DRUGS (2)
  1. INVEGA SUSTENNA [Suspect]
     Active Substance: PALIPERIDONE PALMITATE
     Indication: POST-TRAUMATIC STRESS DISORDER
     Route: 030
     Dates: start: 20170808, end: 20180702
  2. RISPERDAL [Suspect]
     Active Substance: RISPERIDONE
     Indication: POST-TRAUMATIC STRESS DISORDER
     Route: 048
     Dates: start: 201707, end: 20170808

REACTIONS (8)
  - Off label use [Unknown]
  - Breast swelling [Unknown]
  - Product use in unapproved indication [Unknown]
  - Blood prolactin increased [Unknown]
  - Breast tenderness [Unknown]
  - Amenorrhoea [Unknown]
  - Breast enlargement [Unknown]
  - Breast pain [Unknown]

NARRATIVE: CASE EVENT DATE: 201707
